FAERS Safety Report 6401587-X (Version None)
Quarter: 2009Q4

REPORT INFORMATION
  Report Type: 
  Country: None (occurrence: None)
  Receive Date: 20091009
  Receipt Date: 20091009
  Transmission Date: 20100525
  Serious: Yes (Hospitalization)
  Sender: FDA-Public Use
  Company Number: None

PATIENT
  Age: 49 Year
  Sex: Female
  Weight: 82 kg

DRUGS (1)
  1. OXCARBAZEPINE 150MG TABLETS ROXANE [Suspect]
     Indication: CONVULSION
     Dosage: 150MG ONCE PO
     Route: 048

REACTIONS (2)
  - HYPONATRAEMIA [None]
  - UNRESPONSIVE TO STIMULI [None]
